FAERS Safety Report 4945937-X (Version None)
Quarter: 2006Q1

REPORT INFORMATION
  Report Type: 
  Country: None (occurrence: None)
  Receive Date: 20060316
  Receipt Date: 20060221
  Transmission Date: 20060701
  Serious: Yes (Hospitalization)
  Sender: FDA-Public Use
  Company Number: BE-BOEHRINGER INGELHEIM PHARMACEUTICALS, INC.-2006-BL-00056BL

PATIENT
  Sex: Male
  Weight: 3 kg

DRUGS (3)
  1. VIRAMUNE [Suspect]
     Indication: PROPHYLAXIS
     Route: 048
     Dates: start: 20051219, end: 20060116
  2. RETROVIR [Concomitant]
     Indication: PROPHYLAXIS
     Route: 048
     Dates: start: 20051219, end: 20060130
  3. EPIVIR [Concomitant]
     Indication: PROPHYLAXIS
     Route: 048
     Dates: start: 20051219, end: 20060130

REACTIONS (5)
  - BLOOD LACTATE DEHYDROGENASE INCREASED [None]
  - DECREASED APPETITE [None]
  - GAMMA-GLUTAMYLTRANSFERASE INCREASED [None]
  - TRANSAMINASES INCREASED [None]
  - WEIGHT GAIN POOR [None]
